FAERS Safety Report 6980663-7 (Version None)
Quarter: 2010Q3

REPORT INFORMATION
  Report Type: 
  Country: None (occurrence: None)
  Receive Date: 20100914
  Receipt Date: 20100910
  Transmission Date: 20110219
  Serious: Yes (Death, Hospitalization, Other)
  Sender: FDA-Public Use
  Company Number: CHPA2010US14461

PATIENT
  Age: 61 Year
  Sex: Male

DRUGS (6)
  1. SCOPOLAMINE (NCH) [Suspect]
     Indication: DIZZINESS
     Dosage: 1.5 MG, Q72H
     Route: 062
  2. AMLODIPINE [Concomitant]
     Dosage: 5 MG, QD
  3. DEXAMETHASONE [Concomitant]
     Dosage: 8 MG, QD
  4. FENTANYL CITRATE [Concomitant]
     Dosage: 50 UG, Q72H
  5. GABAPENTIN [Concomitant]
     Dosage: 600 MG, BID
  6. SERTRALINE HYDROCHLORIDE [Concomitant]
     Dosage: 25 MG, QD

REACTIONS (6)
  - DELIRIUM [None]
  - HYPOXIA [None]
  - MENTAL STATUS CHANGES [None]
  - NAUSEA [None]
  - OFF LABEL USE [None]
  - PNEUMONIA [None]
